FAERS Safety Report 9484958 (Version 1)
Quarter: 2013Q3

REPORT INFORMATION
  Report Type: Spontaneous
  Country: US (occurrence: US)
  Receive Date: 20130828
  Receipt Date: 20130828
  Transmission Date: 20140515
  Serious: No
  Sender: FDA-Public Use
  Company Number: US-ABBOTT-13P-163-1102316-00

PATIENT
  Age: 50 Year
  Sex: Male
  Weight: 91.71 kg

DRUGS (6)
  1. ANDROGEL [Suspect]
     Indication: BLOOD TESTOSTERONE DECREASED
     Route: 061
     Dates: start: 201303, end: 20130609
  2. ANDROGEL [Suspect]
     Dates: start: 20130611
  3. LOSARTAN [Concomitant]
     Indication: HYPERTENSION
  4. SYNTHROID [Concomitant]
     Indication: HYPOTHYROIDISM
  5. ZOLOFT [Concomitant]
     Indication: DEPRESSION
  6. ZYPREXA [Concomitant]
     Indication: DEPRESSION

REACTIONS (2)
  - Erectile dysfunction [Not Recovered/Not Resolved]
  - Blood testosterone abnormal [Unknown]
